FAERS Safety Report 5356625-2 (Version None)
Quarter: 2007Q2

REPORT INFORMATION
  Report Type: 
  Country: None (occurrence: None)
  Receive Date: 20070614
  Receipt Date: 20070608
  Transmission Date: 20071010
  Serious: Yes (Other)
  Sender: FDA-Public Use
  Company Number: PHNU2007DE02046

PATIENT
  Age: 29 Year
  Sex: Female
  Weight: 58 kg

DRUGS (62)
  1. MYFORTIC [Suspect]
     Indication: RENAL TRANSPLANT
     Dosage: 720 MG/DAY
     Route: 048
     Dates: start: 20060206, end: 20060212
  2. CIPROFLOXACIN HCL [Suspect]
     Indication: PROPHYLAXIS
     Dosage: 472.5 MG/DAY
     Route: 048
     Dates: start: 20060204, end: 20060212
  3. FERROUS SULFATE TAB [Concomitant]
     Indication: IRON DEFICIENCY
     Dosage: 1 DF, QD
     Route: 048
     Dates: start: 20030101
  4. CC NEFRO [Concomitant]
     Indication: HYPERPHOSPHATAEMIA
     Dosage: 1 DF, BID
     Route: 048
     Dates: start: 20050201, end: 20060206
  5. ENALAPRIL MALEATE [Concomitant]
     Dosage: 5 MG, QD
     Route: 048
     Dates: start: 20030101, end: 20060202
  6. ENALAPRIL MALEATE [Concomitant]
     Dosage: 1 DF, QD
     Dates: start: 20060210, end: 20060210
  7. ENALAPRIL MALEATE [Concomitant]
     Dosage: 1 DF, BID
     Route: 048
     Dates: start: 20060211
  8. ENALAPRIL MALEATE [Concomitant]
     Dosage: 0.5 DF, QD
     Route: 048
     Dates: start: 20060209, end: 20060209
  9. EINSALPHA [Concomitant]
     Dosage: 1 DF, QD
     Route: 048
     Dates: start: 20030101, end: 20060203
  10. SANDIMMUNE [Concomitant]
     Dosage: 175 MG, BID
     Route: 048
     Dates: start: 20060203, end: 20060205
  11. SANDIMMUNE [Concomitant]
     Dosage: 175/200MG/DAY
     Route: 048
     Dates: start: 20060206, end: 20060206
  12. SANDIMMUNE [Concomitant]
     Dosage: 400-335MG/DAY
     Dates: start: 20060207, end: 20060210
  13. SANDIMMUNE [Concomitant]
     Dosage: 175 MG, BID
     Dates: start: 20070211
  14. METHYLPREDNISOLONE [Concomitant]
     Dosage: 500 MG, QD
     Route: 042
     Dates: start: 20060207, end: 20060207
  15. METHYLPREDNISOLONE [Concomitant]
     Dosage: 250 MG, QD
     Route: 042
     Dates: start: 20060208, end: 20060208
  16. METHYLPREDNISOLONE [Concomitant]
     Dosage: 125 MG, QD
     Route: 042
  17. METHYLPREDNISOLONE [Concomitant]
     Dosage: 40 MG, QD
     Dates: start: 20060210, end: 20060212
  18. FENISTIL [Concomitant]
     Dosage: 1 DF, ONCE/SINGLE
     Route: 042
     Dates: start: 20060207, end: 20060207
  19. FENISTIL [Concomitant]
     Dosage: 1 DF, ONCE/SINGLE
     Route: 042
     Dates: start: 20070212, end: 20070212
  20. RANITIDINE [Concomitant]
     Dosage: 1 DF, ONCE/SINGLE
     Route: 042
     Dates: start: 20060207, end: 20060207
  21. RANITIDINE [Concomitant]
     Dosage: 1 DF, ONCE/SINGLE
     Route: 042
     Dates: start: 20060212, end: 20060212
  22. SIMULECT [Concomitant]
     Dosage: 20 MG, ONCE/SINGLE
     Dates: start: 20060207, end: 20060207
  23. FENTANYL [Concomitant]
     Dosage: 0.45 MG, QD
     Route: 042
     Dates: start: 20060207, end: 20060207
  24. TRAPANAL [Concomitant]
     Dosage: 350 MG, QD
     Route: 042
     Dates: start: 20060207, end: 20060207
  25. LASIX [Concomitant]
     Dosage: 60 MG, QD
     Route: 042
     Dates: start: 20060207, end: 20060207
  26. INSULIN [Concomitant]
     Dosage: 6 IU, ONCE/SINGLE
     Route: 042
     Dates: start: 20060207, end: 20060207
  27. NATRIUMBIKARBONAT [Concomitant]
     Dosage: 220 ML, ONCE/SINGLE
     Route: 042
     Dates: start: 20060207, end: 20060207
  28. SODIUM CHLORIDE [Concomitant]
     Dosage: 2200 ML, ONCE/SINGLE
     Route: 042
     Dates: start: 20060207, end: 20060207
  29. NIMBEX [Concomitant]
     Dosage: 12 MG, ONCE/SINGLE
     Route: 042
     Dates: start: 20060207, end: 20060207
  30. EFFORTIL [Concomitant]
     Dosage: 6 ML, ONCE/SINGLE
     Route: 042
     Dates: start: 20060207, end: 20060207
  31. DORMICUM [Concomitant]
     Dosage: 7.5 MG, ONCE/SINGLE
     Route: 048
     Dates: start: 20060207, end: 20060207
  32. GLUCOSE [Concomitant]
     Dosage: 669 ML, QD
     Route: 042
     Dates: start: 20060207, end: 20060207
  33. GLUCOSE [Concomitant]
     Dosage: 1237 ML, QD
     Route: 042
     Dates: start: 20060208, end: 20060208
  34. GLUCOSE [Concomitant]
     Dosage: 285 ML, QD
     Route: 042
     Dates: start: 20060209, end: 20060209
  35. KALIUM [Concomitant]
     Dosage: 15.9 ML, QD
     Route: 042
     Dates: start: 20060207, end: 20060207
  36. KALIUM [Concomitant]
     Dosage: 31.5 ML, QD
     Route: 042
     Dates: start: 20060208, end: 20060208
  37. KALIUM [Concomitant]
     Dosage: 9.5 ML, QD
     Route: 042
     Dates: start: 20060209, end: 20060209
  38. HEPARIN [Concomitant]
     Dosage: 375 IU, QD
     Route: 042
     Dates: start: 20060207, end: 20060207
  39. HEPARIN [Concomitant]
     Dosage: 5625 IU, QD
     Route: 042
     Dates: start: 20060208, end: 20060208
  40. HEPARIN [Concomitant]
     Dosage: 2875 IU, QD
     Route: 042
     Dates: start: 20060209, end: 20060209
  41. ALTINSULIN [Concomitant]
     Dosage: 11.75 IU, QD
     Route: 042
     Dates: start: 20060207, end: 20060207
  42. ALTINSULIN [Concomitant]
     Dosage: 23.4 IU, QD
     Route: 042
     Dates: start: 20060208, end: 20060208
  43. ALTINSULIN [Concomitant]
     Dosage: 20.3 IU, QD
     Route: 042
     Dates: start: 20060209, end: 20060209
  44. DIPIDOLOR [Concomitant]
     Dosage: 3 MG, BID
     Route: 042
     Dates: start: 20060207, end: 20060207
  45. DIPIDOLOR [Concomitant]
     Dosage: 3 MG, QID
     Dates: start: 20060208, end: 20060208
  46. THOMAEJONIN [Concomitant]
     Dosage: 240 ML, QD
     Route: 042
     Dates: start: 20060208, end: 20060208
  47. THOMAEJONIN [Concomitant]
     Dosage: 2200 ML, QD
     Route: 042
     Dates: start: 20060209, end: 20060209
  48. ACYCLOVIR [Concomitant]
     Dosage: 200 MG, QD
     Route: 048
     Dates: start: 20060208, end: 20060212
  49. COTRIM FORTE ^HEUMANN^ [Concomitant]
     Dosage: 960 MG, QD
     Route: 048
     Dates: start: 20060208, end: 20060208
  50. COTRIM FORTE ^HEUMANN^ [Concomitant]
     Dosage: 960 MG, QD
     Route: 048
     Dates: start: 20060210, end: 20060210
  51. NEXIUM [Concomitant]
     Dosage: 20 MG, QD
     Route: 048
     Dates: start: 20060208, end: 20060209
  52. NOVAMINSULFON [Concomitant]
     Dosage: 20 DF, BID
     Route: 048
     Dates: start: 20060209, end: 20060209
  53. NOVAMINSULFON [Concomitant]
     Dosage: 20 DF, QID
     Route: 048
     Dates: start: 20060212
  54. AMPHO-MORONAL [Concomitant]
     Dosage: 1 DF, QID
     Route: 048
     Dates: start: 20060209, end: 20060212
  55. FRAXIPARIN [Concomitant]
     Dosage: 1 DF, QD
     Route: 058
     Dates: start: 20060209, end: 20060209
  56. FRAXIPARIN [Concomitant]
     Dosage: 1 DF, BID
     Route: 058
     Dates: start: 20060210, end: 20060210
  57. FRAXIPARIN [Concomitant]
     Dosage: 1 DF, QD
     Route: 058
     Dates: start: 20060211, end: 20060212
  58. PANTOZOL [Concomitant]
     Dosage: 40 MG, QD
     Route: 048
     Dates: start: 20060210, end: 20060212
  59. ARANESP [Concomitant]
     Dosage: 1 DF, QW
     Route: 058
     Dates: start: 20050601, end: 20050701
  60. ARANESP [Concomitant]
     Dosage: 1 DF, QD
     Dates: start: 20050801, end: 20050801
  61. ARANESP [Concomitant]
     Dosage: 1 DF, QW2
     Route: 058
     Dates: start: 20050815, end: 20060207
  62. ARANESP [Concomitant]
     Dosage: 1 DF, QD
     Route: 058
     Dates: start: 20060212, end: 20060212

REACTIONS (5)
  - ALANINE AMINOTRANSFERASE INCREASED [None]
  - ASPARTATE AMINOTRANSFERASE INCREASED [None]
  - BLOOD ALKALINE PHOSPHATASE INCREASED [None]
  - GAMMA-GLUTAMYLTRANSFERASE INCREASED [None]
  - HEPATITIS ACUTE [None]
